FAERS Safety Report 5431645-8 (Version None)
Quarter: 2007Q3

REPORT INFORMATION
  Report Type: 
  Country: None (occurrence: None)
  Receive Date: 20070828
  Receipt Date: 20070814
  Transmission Date: 20080115
  Serious: Yes (Hospitalization)
  Sender: FDA-Public Use
  Company Number: 2007VX002101

PATIENT
  Age: 49 Year
  Sex: Male
  Weight: 77.1115 kg

DRUGS (4)
  1. INFERGEN [Suspect]
     Indication: HEPATITIS C
     Dosage: 15 UG; QD;SC
     Route: 058
     Dates: start: 20070717, end: 20070809
  2. RIBAVIRIN [Suspect]
     Dosage: 600 MG, BID;PO
     Route: 048
     Dates: start: 20061101, end: 20070809
  3. AMBIEN CR [Concomitant]
  4. REQUIP [Concomitant]

REACTIONS (15)
  - BLOOD CREATININE DECREASED [None]
  - BLOOD MAGNESIUM DECREASED [None]
  - BLOOD POTASSIUM DECREASED [None]
  - CONDITION AGGRAVATED [None]
  - DEPRESSION [None]
  - HAEMOGLOBIN DECREASED [None]
  - HEPATIC ENZYME INCREASED [None]
  - HYPOTENSION [None]
  - INFLUENZA LIKE ILLNESS [None]
  - MITRAL VALVE INCOMPETENCE [None]
  - RED BLOOD CELL COUNT DECREASED [None]
  - SCIATICA [None]
  - SOMNOLENCE [None]
  - WEIGHT DECREASED [None]
  - WHITE BLOOD CELL COUNT DECREASED [None]
